FAERS Safety Report 14916101 (Version 2)
Quarter: 2018Q2

REPORT INFORMATION
  Report Type: Spontaneous
  Country: US (occurrence: US)
  Receive Date: 20180518
  Receipt Date: 20180613
  Transmission Date: 20180711
  Serious: No
  Sender: FDA-Public Use
  Company Number: US-GLAXOSMITHKLINE-US2018086750

PATIENT
  Sex: Female

DRUGS (13)
  1. XANAX [Concomitant]
     Active Substance: ALPRAZOLAM
  2. ANORO ELLIPTA [Suspect]
     Active Substance: UMECLIDINIUM BROMIDE\VILANTEROL TRIFENATATE
     Dosage: UNK
  3. ATORVASTATIN [Concomitant]
     Active Substance: ATORVASTATIN
  4. ASPIRIN. [Concomitant]
     Active Substance: ASPIRIN
  5. CILOSTAZOL. [Concomitant]
     Active Substance: CILOSTAZOL
  6. ANORO ELLIPTA [Suspect]
     Active Substance: UMECLIDINIUM BROMIDE\VILANTEROL TRIFENATATE
     Indication: CHRONIC OBSTRUCTIVE PULMONARY DISEASE
     Dosage: 1 PUFF(S), UNK
     Dates: start: 2017
  7. VITAMIN D3 [Concomitant]
     Active Substance: CHOLECALCIFEROL
  8. BRILINTA [Concomitant]
     Active Substance: TICAGRELOR
  9. CARVEDILOL. [Concomitant]
     Active Substance: CARVEDILOL
  10. MIRTAZAPINE. [Concomitant]
     Active Substance: MIRTAZAPINE
  11. MORPHINE [Concomitant]
     Active Substance: MORPHINE
  12. LYRICA [Concomitant]
     Active Substance: PREGABALIN
  13. OXYCODONE [Concomitant]
     Active Substance: OXYCODONE

REACTIONS (3)
  - Product quality issue [Unknown]
  - Dyspnoea paroxysmal nocturnal [Unknown]
  - Dyspnoea [Unknown]
